FAERS Safety Report 6649068-2 (Version None)
Quarter: 2010Q1

REPORT INFORMATION
  Report Type: 
  Country: None (occurrence: None)
  Receive Date: 20100319
  Receipt Date: 20100317
  Transmission Date: 20100710
  Serious: Yes (Death, Hospitalization)
  Sender: FDA-Public Use
  Company Number: 2010SP016238

PATIENT
  Age: 72 Year
  Sex: Male
  Weight: 52.6 kg

DRUGS (9)
  1. TEMODAL [Suspect]
     Indication: ANAPLASTIC ASTROCYTOMA
     Dosage: 75 MG/M2;QD;PO, 150 MG/M2;QD;PO, 150 MG/M2;QD;PO
     Route: 048
     Dates: start: 20080806, end: 20080917
  2. TEMODAL [Suspect]
     Indication: ANAPLASTIC ASTROCYTOMA
     Dosage: 75 MG/M2;QD;PO, 150 MG/M2;QD;PO, 150 MG/M2;QD;PO
     Route: 048
     Dates: start: 20081024, end: 20081028
  3. TEMODAL [Suspect]
     Indication: ANAPLASTIC ASTROCYTOMA
     Dosage: 75 MG/M2;QD;PO, 150 MG/M2;QD;PO, 150 MG/M2;QD;PO
     Route: 048
     Dates: start: 20090601, end: 20090605
  4. COTRIM [Concomitant]
  5. FERON [Concomitant]
  6. DEPAKENE [Concomitant]
  7. RINDERON [Concomitant]
  8. BETAMETHASONE [Concomitant]
  9. LANSOPRAZOLE [Concomitant]

REACTIONS (5)
  - ANAPLASTIC ASTROCYTOMA [None]
  - ILEUS [None]
  - MALIGNANT NEOPLASM PROGRESSION [None]
  - NO THERAPEUTIC RESPONSE [None]
  - SUBDURAL HAEMATOMA [None]
